FAERS Safety Report 24235113 (Version 1)
Quarter: 2024Q3

REPORT INFORMATION
  Report Type: Spontaneous
  Country: FR (occurrence: FR)
  Receive Date: 20240821
  Receipt Date: 20240821
  Transmission Date: 20241017
  Serious: Yes (Hospitalization)
  Sender: pharmaAND
  Company Number: FR-AFSSAPS-PV2024000697

PATIENT
  Age: 67 Year
  Sex: Male

DRUGS (4)
  1. PEGASYS [Suspect]
     Active Substance: PEGINTERFERON ALFA-2A
     Indication: Essential thrombocythaemia
     Dosage: 45 ?G, 1X/WEEK
     Route: 058
     Dates: start: 201702, end: 20240625
  2. PRAVASTATIN ACCORD 10 mg [Concomitant]
     Indication: Product used for unknown indication
  3. LEVOCETIRIZINE [Concomitant]
     Active Substance: LEVOCETIRIZINE
     Indication: Product used for unknown indication
  4. KARDEGIC [Concomitant]
     Active Substance: ASPIRIN DL-LYSINE
     Indication: Product used for unknown indication

REACTIONS (3)
  - Syncope [Recovered/Resolved]
  - Off label use [Recovered/Resolved]
  - Essential thrombocythaemia [Recovered/Resolved]

NARRATIVE: CASE EVENT DATE: 20240630
